FAERS Safety Report 5716625-7 (Version None)
Quarter: 2008Q2

REPORT INFORMATION
  Report Type: 
  Country: None (occurrence: None)
  Receive Date: 20080424
  Receipt Date: 20080418
  Transmission Date: 20081010
  Serious: Yes (Other)
  Sender: FDA-Public Use
  Company Number: US-KINGPHARMUSA00001-K200800451

PATIENT

DRUGS (5)
  1. ALTACE [Suspect]
     Indication: ACUTE CORONARY SYNDROME
     Route: 048
     Dates: start: 20071101
  2. PLAVIX [Suspect]
     Indication: ACUTE CORONARY SYNDROME
     Dosage: 75 MG, QD
     Route: 048
     Dates: start: 20071101
  3. PLAVIX [Suspect]
     Indication: STENT PLACEMENT
  4. ROSUVASTATIN [Suspect]
     Route: 048
     Dates: start: 20071101
  5. METOPROLOL TARTRATE [Concomitant]
     Dosage: UNK, UNK
     Route: 048
     Dates: start: 20071101

REACTIONS (2)
  - DYSPNOEA [None]
  - PULMONARY FIBROSIS [None]
